FAERS Safety Report 25946737 (Version 1)
Quarter: 2025Q4

REPORT INFORMATION
  Report Type: Spontaneous
  Country: GB (occurrence: GB)
  Receive Date: 20251022
  Receipt Date: 20251022
  Transmission Date: 20260117
  Serious: Yes (Hospitalization, Other)
  Sender: AUROBINDO
  Company Number: GB-PHARMVIT-4556-222327-ER25-RN1619

PATIENT
  Age: 51 Year
  Sex: Male

DRUGS (1)
  1. IBUPROFEN [Suspect]
     Active Substance: IBUPROFEN
     Indication: Product used for unknown indication
     Dosage: 12 GRAM
     Route: 065

REACTIONS (2)
  - Blindness [Recovering/Resolving]
  - Overdose [Recovered/Resolved]
